FAERS Safety Report 12784541 (Version 1)
Quarter: 2016Q3

REPORT INFORMATION
  Report Type: Spontaneous
  Country: AU (occurrence: AU)
  Receive Date: 20160927
  Receipt Date: 20160927
  Transmission Date: 20161109
  Serious: Yes (Other)
  Sender: FDA-Public Use
  Company Number: AU-JNJFOC-20160920697

PATIENT
  Sex: Male

DRUGS (1)
  1. LEVAQUIN [Suspect]
     Active Substance: LEVOFLOXACIN
     Indication: MASS
     Dosage: THE PATIENT HAD 3 DOSES OF LEVAQUIN BEFORE DIAGNOSIS OF STAGE 4 LUNG CANCER.
     Route: 065

REACTIONS (3)
  - Lung carcinoma cell type unspecified stage IV [Unknown]
  - Pain [Unknown]
  - Tendonitis [Unknown]

NARRATIVE: CASE EVENT DATE: 201606
